FAERS Safety Report 21308767 (Version 1)
Quarter: 2022Q3

REPORT INFORMATION
  Report Type: Report from Study
  Country: US (occurrence: None)
  Receive Date: 20220908
  Receipt Date: 20220908
  Transmission Date: 20221027
  Serious: Yes (Disabling, Other)
  Sender: FDA-Public Use
  Company Number: US-Merck KGaA-E2B_80064186

PATIENT
  Age: 45 Year
  Sex: Female

DRUGS (3)
  1. REBIF [Suspect]
     Active Substance: INTERFERON BETA-1A
     Indication: Multiple sclerosis
     Route: 058
     Dates: start: 2004
  2. REBIF [Suspect]
     Active Substance: INTERFERON BETA-1A
     Dosage: MANUAL, REBIDOSE
     Route: 058
     Dates: start: 20050127
  3. REBIF [Suspect]
     Active Substance: INTERFERON BETA-1A
     Dosage: THREE INJECTIONS ONE WEEK AND TWO INJECTIONS THE NEXT WEEK
     Route: 058

REACTIONS (14)
  - Cerebrovascular accident [Unknown]
  - Disability [Not Recovered/Not Resolved]
  - Deafness unilateral [Not Recovered/Not Resolved]
  - Central nervous system lesion [Not Recovered/Not Resolved]
  - Tinnitus [Not Recovered/Not Resolved]
  - Demyelination [Unknown]
  - Multiple sclerosis [Unknown]
  - Seasonal allergy [Not Recovered/Not Resolved]
  - Crying [Not Recovered/Not Resolved]
  - Ear pain [Not Recovered/Not Resolved]
  - Depressed mood [Unknown]
  - Hyperhidrosis [Not Recovered/Not Resolved]
  - Feeling cold [Not Recovered/Not Resolved]
  - Headache [Unknown]

NARRATIVE: CASE EVENT DATE: 20070101
